FAERS Safety Report 15821818 (Version 1)
Quarter: 2019Q1

REPORT INFORMATION
  Report Type: Spontaneous
  Country: US (occurrence: US)
  Receive Date: 20190114
  Receipt Date: 20190114
  Transmission Date: 20190417
  Serious: Yes (Hospitalization)
  Sender: FDA-Public Use
  Company Number: None

PATIENT
  Age: 79 Year
  Sex: Female

DRUGS (15)
  1. NORVASC [Concomitant]
     Active Substance: AMLODIPINE BESYLATE
  2. NOVOLOG MIX 70/30 [Concomitant]
     Active Substance: INSULIN ASPART
  3. PLAVIX [Concomitant]
     Active Substance: CLOPIDOGREL BISULFATE
  4. SOTALOL. [Concomitant]
     Active Substance: SOTALOL
  5. VENTOLIN [Concomitant]
     Active Substance: ALBUTEROL SULFATE
  6. OXYBUTYNIN. [Concomitant]
     Active Substance: OXYBUTYNIN CHLORIDE
  7. SINGULAIR [Concomitant]
     Active Substance: MONTELUKAST SODIUM
  8. ASPIRIN. [Concomitant]
     Active Substance: ASPIRIN
  9. XOLAIR [Suspect]
     Active Substance: OMALIZUMAB
     Indication: ASTHMA
     Dosage: ?          OTHER FREQUENCY:EVERY 2 WEEKS;?
     Route: 058
     Dates: start: 20170519
  10. PROBIOTICS [Concomitant]
     Active Substance: PROBIOTICS NOS
  11. CRANBERRY. [Concomitant]
     Active Substance: CRANBERRY
  12. JANUVIA [Concomitant]
     Active Substance: SITAGLIPTIN PHOSPHATE
  13. SYMBICORT [Concomitant]
     Active Substance: BUDESONIDE\FORMOTEROL FUMARATE DIHYDRATE
  14. TURMERIC [Concomitant]
     Active Substance: HERBALS\TURMERIC
  15. ZETIA [Concomitant]
     Active Substance: EZETIMIBE

REACTIONS (1)
  - Arterial thrombosis [None]

NARRATIVE: CASE EVENT DATE: 20181101
